FAERS Safety Report 6519535-0 (Version None)
Quarter: 2009Q4

REPORT INFORMATION
  Report Type: 
  Country: None (occurrence: None)
  Receive Date: 20091228
  Receipt Date: 20091215
  Transmission Date: 20100525
  Serious: Yes (Other)
  Sender: FDA-Public Use
  Company Number: DE-PFIZER INC-2009300605

PATIENT

DRUGS (1)
  1. SUTENT [Suspect]
     Dosage: 37.5 MG, UNK
     Route: 048

REACTIONS (3)
  - DIARRHOEA [None]
  - FAECAL CALPROTECTIN [None]
  - ILEUS [None]
